FAERS Safety Report 8319374-4 (Version None)
Quarter: 2012Q2

REPORT INFORMATION
  Report Type: 
  Country: None (occurrence: None)
  Receive Date: 20120426
  Receipt Date: 20120426
  Transmission Date: 20120825
  Serious: Yes (Hospitalization)
  Sender: FDA-Public Use
  Company Number: None

PATIENT
  Sex: Male

DRUGS (1)
  1. REVATIO [Suspect]
     Indication: PULMONARY ARTERIAL HYPERTENSION
     Dosage: 20 TID PO
     Route: 048
     Dates: start: 20120201

REACTIONS (4)
  - BLOOD GLUCOSE INCREASED [None]
  - POLYURIA [None]
  - MALAISE [None]
  - ASTHENIA [None]
